FAERS Safety Report 21885584 (Version 1)
Quarter: 2023Q1

REPORT INFORMATION
  Report Type: Spontaneous
  Country: FR (occurrence: FR)
  Receive Date: 20230119
  Receipt Date: 20230119
  Transmission Date: 20230418
  Serious: Yes (Death, Other)
  Sender: FDA-Public Use
  Company Number: FR-BAXTER-2022BAX026201

PATIENT
  Age: 82 Year
  Sex: Male

DRUGS (3)
  1. DEXAMETHASONE [Suspect]
     Active Substance: DEXAMETHASONE
     Indication: Product used for unknown indication
     Dosage: 40 MG/DOSE 4 DOSE(S)/WEEK 2 WEEK(S)/CYCLE
     Route: 065
  2. BORTEZOMIB [Suspect]
     Active Substance: BORTEZOMIB
     Indication: Product used for unknown indication
     Dosage: 2.4 MG/DOSE 2 DOSE(S)/WEEK 2 WEEK(S)/CYCLE
     Route: 065
  3. CYCLOPHOSPHAMIDE [Suspect]
     Active Substance: CYCLOPHOSPHAMIDE
     Indication: Product used for unknown indication
     Dosage: 950 MG/DOSE 1 DOSE(S)/WEEK 3 WEEK(S)/CYCLE
     Route: 065

REACTIONS (3)
  - Haemorrhagic stroke [Fatal]
  - Febrile bone marrow aplasia [Unknown]
  - Pneumonia [Unknown]
